FAERS Safety Report 6532369-6 (Version None)
Quarter: 2010Q1

REPORT INFORMATION
  Report Type: 
  Country: None (occurrence: None)
  Receive Date: 20100108
  Receipt Date: 20091229
  Transmission Date: 20100710
  Serious: Yes (Other)
  Sender: FDA-Public Use
  Company Number: US-PFIZER INC-2009316248

PATIENT
  Sex: Female
  Weight: 45.805 kg

DRUGS (7)
  1. XALATAN [Suspect]
     Indication: GLAUCOMA
     Dosage: 1 GTT IN EACH EYE, 1X/DAY
     Route: 047
     Dates: start: 20070101, end: 20090101
  2. TRAVATAN [Suspect]
     Indication: GLAUCOMA
     Dosage: UNK
     Dates: start: 20090101, end: 20090101
  3. NEURONTIN [Concomitant]
  4. SYNTHROID [Concomitant]
     Indication: HYPOTHYROIDISM
  5. ALBUTEROL [Concomitant]
     Indication: ASTHMA
     Route: 055
  6. ACETYLSALICYLIC ACID [Concomitant]
  7. PRAVACHOL [Concomitant]
     Indication: BLOOD CHOLESTEROL INCREASED

REACTIONS (8)
  - DEHYDRATION [None]
  - DIARRHOEA [None]
  - DRUG HYPERSENSITIVITY [None]
  - HYPOTENSION [None]
  - NAUSEA [None]
  - OCULAR HYPERAEMIA [None]
  - SINUSITIS [None]
  - URINARY TRACT INFECTION [None]
